FAERS Safety Report 15770421 (Version 1)
Quarter: 2018Q4

REPORT INFORMATION
  Report Type: Spontaneous
  Country: US (occurrence: US)
  Receive Date: 20181228
  Receipt Date: 20181228
  Transmission Date: 20190205
  Serious: No
  Sender: FDA-Public Use
  Company Number: US-MYLANLABS-2018M1090394

PATIENT

DRUGS (4)
  1. DIAZEPAM TABLETS USP [Suspect]
     Active Substance: DIAZEPAM
     Indication: ANXIETY
     Dosage: 10 MILLIGRAM
     Route: 048
  2. DIAZEPAM TABLETS USP [Suspect]
     Active Substance: DIAZEPAM
     Indication: ANXIETY
     Dosage: UNK
  3. LORAZEPAM. [Concomitant]
     Active Substance: LORAZEPAM
  4. CLONIDINE. [Concomitant]
     Active Substance: CLONIDINE
     Dosage: 0.1 MILLIGRAM, QD

REACTIONS (3)
  - Drug ineffective [Recovered/Resolved]
  - Anxiety [Recovered/Resolved]
  - Nervousness [Recovered/Resolved]
